FAERS Safety Report 6025667-6 (Version None)
Quarter: 2008Q4

REPORT INFORMATION
  Report Type: 
  Country: None (occurrence: None)
  Receive Date: 20081231
  Receipt Date: 20081222
  Transmission Date: 20090506
  Serious: Yes (Hospitalization, Other)
  Sender: FDA-Public Use
  Company Number: ES-ABBOTT-08P-144-0494305-01

PATIENT
  Age: 26 Year
  Sex: Male
  Weight: 75 kg

DRUGS (2)
  1. HUMIRA [Suspect]
     Indication: CROHN'S DISEASE
     Route: 058
     Dates: start: 20080929, end: 20081110
  2. HIBOR [Concomitant]
     Indication: THROMBOSIS PROPHYLAXIS
     Dates: start: 20081118, end: 20081120

REACTIONS (1)
  - INTESTINAL OBSTRUCTION [None]
